FAERS Safety Report 23481222 (Version 6)
Quarter: 2024Q2

REPORT INFORMATION
  Report Type: Spontaneous
  Country: US (occurrence: US)
  Receive Date: 20240205
  Receipt Date: 20240626
  Transmission Date: 20240716
  Serious: No
  Sender: FDA-Public Use
  Company Number: US-PFIZER INC-202400016180

PATIENT
  Age: 14 Year
  Sex: Male
  Weight: 51.7 kg

DRUGS (3)
  1. GENOTROPIN [Suspect]
     Active Substance: SOMATROPIN
     Indication: Hypopituitarism
     Dosage: 2.4 MG
  2. GENOTROPIN [Suspect]
     Active Substance: SOMATROPIN
     Indication: Growth hormone deficiency
     Dosage: INJECT 2.6MG SQ 6X/WK.
     Route: 058
  3. GENOTROPIN [Suspect]
     Active Substance: SOMATROPIN
     Dosage: 2.8 MG, 6 DAYS/WEEK (PEN NEEDLE GAUGE: 31; EQUALS 0.30MG/KG/WK)
     Route: 058

REACTIONS (3)
  - Device use error [Unknown]
  - Device breakage [Unknown]
  - Prescribed overdose [Unknown]
